FAERS Safety Report 10373962 (Version 4)
Quarter: 2014Q4

REPORT INFORMATION
  Report Type: Report from Study
  Country: JP (occurrence: JP)
  Receive Date: 20140809
  Receipt Date: 20141105
  Transmission Date: 20150528
  Serious: Yes (Hospitalization)
  Sender: FDA-Public Use
  Company Number: PHHY2014JP095146

PATIENT
  Age: 29 Year
  Sex: Female

DRUGS (10)
  1. 5 FLUORO URACIL [Suspect]
     Active Substance: FLUOROURACIL
     Indication: HER-2 POSITIVE BREAST CANCER
     Dates: start: 20140718
  2. CYCLOPHOSPHAMIDE. [Suspect]
     Active Substance: CYCLOPHOSPHAMIDE
     Indication: HER-2 POSITIVE BREAST CANCER
     Dates: start: 20140718
  3. DECADRON-PHOSPHAT [Concomitant]
     Indication: PROPHYLAXIS
     Route: 065
  4. EPIRUBICIN [Suspect]
     Active Substance: EPIRUBICIN
     Indication: HER-2 POSITIVE BREAST CANCER
     Dates: start: 20140718
  5. EMEND [Concomitant]
     Active Substance: APREPITANT
     Indication: PROPHYLAXIS
     Route: 065
     Dates: start: 20140718, end: 20140921
  6. DECADRAN [Concomitant]
     Indication: PREMEDICATION
     Route: 065
     Dates: start: 20140718, end: 20140922
  7. EMEND [Concomitant]
     Active Substance: APREPITANT
     Indication: PREMEDICATION
  8. ALOXI [Concomitant]
     Active Substance: PALONOSETRON HYDROCHLORIDE
     Indication: PROPHYLAXIS
     Route: 042
     Dates: start: 20140718, end: 20140919
  9. DECADRON-PHOSPHAT [Concomitant]
     Indication: PREMEDICATION
  10. ALOXI [Concomitant]
     Active Substance: PALONOSETRON HYDROCHLORIDE
     Indication: PREMEDICATION

REACTIONS (5)
  - Malaise [Recovered/Resolved]
  - Dehydration [Recovered/Resolved]
  - Nausea [Recovered/Resolved]
  - Palpitations [Recovered/Resolved]
  - Myalgia [Recovered/Resolved]

NARRATIVE: CASE EVENT DATE: 20140718
